FAERS Safety Report 8832390 (Version 2)
Quarter: 2012Q4

REPORT INFORMATION
  Report Type: 
  Country: BE (occurrence: BE)
  Receive Date: 20121009
  Receipt Date: 20121114
  Transmission Date: 20130627
  Serious: Yes (Other)
  Sender: FDA-Public Use
  Company Number: BE-ROCHE-1138524

PATIENT
  Age: 66 Year
  Sex: Male

DRUGS (8)
  1. ROACTEMRA [Suspect]
     Indication: RHEUMATOID ARTHRITIS
     Route: 042
     Dates: start: 20120427, end: 20120622
  2. ROACTEMRA [Suspect]
     Route: 042
     Dates: start: 20111007, end: 20120722
  3. CORTICOIDS NOS [Suspect]
     Indication: RHEUMATOID ARTHRITIS
     Route: 065
     Dates: start: 2012
  4. MEDROL [Concomitant]
     Indication: RHEUMATOID ARTHRITIS
     Route: 048
  5. PROGOR [Concomitant]
     Indication: HYPERTENSION
     Route: 048
  6. COVERSYL [Concomitant]
     Indication: HYPERTENSION
     Route: 048
  7. SIMVASTATINE [Concomitant]
     Indication: HYPERCHOLESTEROLAEMIA
     Route: 048
  8. PANTOMED [Concomitant]
     Route: 048

REACTIONS (5)
  - Pulmonary mass [Not Recovered/Not Resolved]
  - Lymphadenopathy [Recovered/Resolved]
  - Weight decreased [Unknown]
  - Lung infiltration [Recovered/Resolved]
  - Erosive oesophagitis [Unknown]
